FAERS Safety Report 22621371 (Version 3)
Quarter: 2024Q3

REPORT INFORMATION
  Report Type: Spontaneous
  Country: GB (occurrence: GB)
  Receive Date: 20230620
  Receipt Date: 20240823
  Transmission Date: 20241017
  Serious: Yes (Disabling, Other)
  Sender: IPSEN
  Company Number: GB-MHRA-MED-202306121451547620-RWDQJ

PATIENT
  Age: 51 Year
  Sex: Female

DRUGS (1)
  1. BOTULINUM TOXIN TYPE A [Suspect]
     Active Substance: BOTULINUM TOXIN TYPE A
     Indication: Skin wrinkling
     Dosage: 4 INJECTIONS WERE GIVEN EACH SIDE OF THE EYES, THE WEBSITE AND RECORD BOTULISM TOXIN INJECTION SHEET
     Route: 050
     Dates: start: 20230510, end: 20230510

REACTIONS (26)
  - Aphasia [Not Recovered/Not Resolved]
  - Dry mouth [Not Recovered/Not Resolved]
  - Dry eye [Recovering/Resolving]
  - Dysphagia [Not Recovered/Not Resolved]
  - Panic attack [Not Recovered/Not Resolved]
  - Paraesthesia [Not Recovered/Not Resolved]
  - Chest discomfort [Not Recovered/Not Resolved]
  - Flushing [Not Recovered/Not Resolved]
  - Disturbance in attention [Not Recovered/Not Resolved]
  - Tremor [Not Recovered/Not Resolved]
  - Weight decreased [Not Recovered/Not Resolved]
  - Dyspnoea [Not Recovered/Not Resolved]
  - Anxiety [Not Recovered/Not Resolved]
  - Gastrooesophageal reflux disease [Not Recovered/Not Resolved]
  - Constipation [Not Recovered/Not Resolved]
  - Pain [Unknown]
  - Botulism [Unknown]
  - Contusion [Unknown]
  - Burning sensation [Unknown]
  - Abdominal mass [Unknown]
  - Muscle atrophy [Unknown]
  - Depressed mood [Unknown]
  - Product preparation error [Unknown]
  - Impaired work ability [Unknown]
  - Hordeolum [Not Recovered/Not Resolved]
  - Off label use [Unknown]

NARRATIVE: CASE EVENT DATE: 20230510
